FAERS Safety Report 18643922 (Version 1)
Quarter: 2020Q4

REPORT INFORMATION
  Report Type: Report from Study
  Country: US (occurrence: US)
  Receive Date: 20201221
  Receipt Date: 20201221
  Transmission Date: 20210114
  Serious: Yes (Hospitalization, Other)
  Sender: FDA-Public Use
  Company Number: US-R-PHARM US LLC-2020RPM00018

PATIENT
  Age: 74 Year
  Sex: Female
  Weight: 110.4 kg

DRUGS (9)
  1. COMPAZINE [Concomitant]
     Active Substance: PROCHLORPERAZINE MALEATE
  2. IXABEPILONE [Suspect]
     Active Substance: IXABEPILONE
     Indication: OVARIAN CANCER RECURRENT
     Dosage: 12 MG/M2 ON DAY 1, 15
     Route: 042
     Dates: start: 20200821, end: 20201118
  3. SYNTHROID [Concomitant]
     Active Substance: LEVOTHYROXINE SODIUM
  4. MIRALAX [Concomitant]
     Active Substance: POLYETHYLENE GLYCOL 3350
  5. LOPRESSOR [Concomitant]
     Active Substance: METOPROLOL TARTRATE
  6. OXYCODONE [Concomitant]
     Active Substance: OXYCODONE
  7. XARELTO [Concomitant]
     Active Substance: RIVAROXABAN
  8. MAXZIDE [Concomitant]
     Active Substance: HYDROCHLOROTHIAZIDE\TRIAMTERENE
  9. ALLEGRA [Concomitant]
     Active Substance: FEXOFENADINE HYDROCHLORIDE

REACTIONS (6)
  - Intestinal perforation [Recovering/Resolving]
  - Ovarian cancer recurrent [Unknown]
  - Abscess intestinal [Recovering/Resolving]
  - Anaemia [Recovering/Resolving]
  - Off label use [Recovered/Resolved]
  - Haematochezia [Recovered/Resolved]

NARRATIVE: CASE EVENT DATE: 2020
